FAERS Safety Report 20825071 (Version 2)
Quarter: 2022Q3

REPORT INFORMATION
  Report Type: Report from Study
  Country: FR (occurrence: FR)
  Receive Date: 20220513
  Receipt Date: 20220811
  Transmission Date: 20221027
  Serious: Yes (Hospitalization, Other)
  Sender: FDA-Public Use
  Company Number: FR-ALNYLAM PHARMACEUTICALS, INC.-ALN-2021-003581

PATIENT

DRUGS (2)
  1. ONPATTRO [Suspect]
     Active Substance: PATISIRAN SODIUM
     Indication: Product used for unknown indication
     Route: 065
  2. COVID-10 vaccine [Concomitant]
     Indication: COVID-19 immunisation
     Route: 065

REACTIONS (6)
  - Breast cancer [Unknown]
  - Poor venous access [Unknown]
  - Gait disturbance [Unknown]
  - Negative thoughts [Unknown]
  - Cardiac disorder [Unknown]
  - Depression [Unknown]

NARRATIVE: CASE EVENT DATE: 20190101
